FAERS Safety Report 9948725 (Version 1)
Quarter: 2014Q1

REPORT INFORMATION
  Report Type: Spontaneous
  Country: US (occurrence: None)
  Receive Date: 20140122
  Receipt Date: 20140122
  Transmission Date: 20141002
  Serious: Yes (Other)
  Sender: FDA-Public Use
  Company Number: AEGR000158

PATIENT
  Age: 43 Year
  Sex: Female
  Weight: 59 kg

DRUGS (1)
  1. JUXTAPID [Suspect]
     Indication: BLOOD TRIGLYCERIDES INCREASED
     Dosage: UNK, ORAL
     Route: 048
     Dates: start: 201309, end: 201309

REACTIONS (4)
  - Abdominal pain upper [None]
  - Diarrhoea [None]
  - Vomiting [None]
  - Off label use [None]
